FAERS Safety Report 5363508-0 (Version None)
Quarter: 2007Q2

REPORT INFORMATION
  Report Type: 
  Country: None (occurrence: None)
  Receive Date: 20070618
  Receipt Date: 20070601
  Transmission Date: 20071010
  Serious: Yes (Hospitalization, Disabling, Other)
  Sender: FDA-Public Use
  Company Number: 2007RR-07901

PATIENT
  Age: 86 Year
  Sex: Female

DRUGS (9)
  1. GABAPENTIN [Suspect]
     Dosage: SEE IMAGE
     Route: 048
     Dates: start: 20060906, end: 20070313
  2. GABAPENTIN [Suspect]
     Dosage: SEE IMAGE
     Route: 048
     Dates: start: 20070405, end: 20070413
  3. RANITIDINE [Suspect]
     Dosage: 150 MG, BID, ORAL
     Route: 048
     Dates: start: 20070327, end: 20070410
  4. BENDROFLUMETHIAZIDE (BENDROFLUMETHIAZIDE) [Concomitant]
  5. DICLOFENAC (DICLOFENAC) [Concomitant]
  6. DOMPERIDONE (DOMPERIDONE) [Concomitant]
  7. LEVOTHYROXINE SODIUM [Concomitant]
  8. MOVICOL [Concomitant]
  9. OXYCONTIN [Concomitant]

REACTIONS (3)
  - CEREBELLAR ATAXIA [None]
  - MANIA [None]
  - PARANOIA [None]
